FAERS Safety Report 9696258 (Version 1)
Quarter: 2013Q4

REPORT INFORMATION
  Report Type: Spontaneous
  Country: FR (occurrence: None)
  Receive Date: 20131115
  Receipt Date: 20131115
  Transmission Date: 20140711
  Serious: Yes (Hospitalization)
  Sender: FDA-Public Use
  Company Number: SYM-2013-12949

PATIENT
  Age: 60 Year
  Sex: 0

DRUGS (4)
  1. 5-FU [Suspect]
     Indication: COLORECTAL CANCER METASTATIC
     Dates: start: 20131007, end: 20131007
  2. LEUCOVORIN (FOLINIC ACID) (FOLINIC ACID) [Suspect]
     Indication: COLORECTAL CANCER METASTATIC
     Dates: start: 20131007, end: 20131007
  3. AFLIBERCEPT [Suspect]
     Indication: COLORECTAL CANCER METASTATIC
     Route: 042
     Dates: start: 20131007, end: 20131007
  4. OXALIPLATIN (OXALIPLATIN) (SOLUTION FOR INFUSION) (OXALIPLATIN) [Suspect]
     Indication: COLORECTAL CANCER METASTATIC
     Route: 042
     Dates: start: 20131007, end: 20131007

REACTIONS (1)
  - Pulmonary embolism [None]
